FAERS Safety Report 7252289-1 (Version None)
Quarter: 2011Q1

REPORT INFORMATION
  Report Type: 
  Country: None (occurrence: None)
  Receive Date: 20110129
  Receipt Date: 20100127
  Transmission Date: 20110831
  Serious: No
  Sender: FDA-Public Use
  Company Number: US-ABBOTT-08P-163-0441912-00

PATIENT
  Sex: Male
  Weight: 63.56 kg

DRUGS (9)
  1. FOLIC ACID [Concomitant]
     Indication: VITAMIN SUPPLEMENTATION
  2. VITAMIN E [Concomitant]
     Indication: VITAMIN SUPPLEMENTATION
  3. HUMIRA [Suspect]
     Route: 058
     Dates: start: 20080228, end: 20080228
  4. CORTISONE ENEMAS [Concomitant]
     Indication: CROHN'S DISEASE
  5. VITAMIN D [Concomitant]
     Indication: VITAMIN SUPPLEMENTATION
  6. HUMIRA [Suspect]
     Route: 058
     Dates: start: 20080101, end: 20090101
  7. ZOLOFT [Concomitant]
     Indication: DEPRESSION
     Route: 048
  8. HUMIRA [Suspect]
     Indication: CROHN'S DISEASE
     Route: 058
     Dates: start: 20080214, end: 20080228
  9. HUMIRA [Suspect]
     Route: 058
     Dates: start: 20090101, end: 20100122

REACTIONS (4)
  - LARGE INTESTINAL ULCER [None]
  - RECTAL HAEMORRHAGE [None]
  - ABDOMINAL PAIN [None]
  - DRUG INEFFECTIVE [None]
